FAERS Safety Report 13933855 (Version 4)
Quarter: 2018Q3

REPORT INFORMATION
  Report Type: Spontaneous
  Country: US (occurrence: US)
  Receive Date: 20170904
  Receipt Date: 20180905
  Transmission Date: 20181010
  Serious: Yes (Hospitalization, Other)
  Sender: FDA-Public Use
  Company Number: US-DSJP-DSU-2017-134640

PATIENT

DRUGS (2)
  1. BENICAR [Suspect]
     Active Substance: OLMESARTAN MEDOXOMIL
     Dosage: 40 MG, UNK
     Route: 048
     Dates: start: 2009
  2. BENICAR [Suspect]
     Active Substance: OLMESARTAN MEDOXOMIL
     Indication: HYPERTENSION
     Dosage: 20 MG, QD
     Route: 048
     Dates: start: 20070322, end: 20171108

REACTIONS (8)
  - Acute kidney injury [Unknown]
  - Diverticulum intestinal [Not Recovered/Not Resolved]
  - Colitis [Recovering/Resolving]
  - Haematochezia [Unknown]
  - Gastrointestinal inflammation [Unknown]
  - Haemorrhoids [Unknown]
  - Inguinal hernia [Unknown]
  - Diverticulitis [Recovered/Resolved]

NARRATIVE: CASE EVENT DATE: 2009
